FAERS Safety Report 8181201-6 (Version None)
Quarter: 2012Q1

REPORT INFORMATION
  Report Type: 
  Country: None (occurrence: None)
  Receive Date: 20120302
  Receipt Date: 20120209
  Transmission Date: 20120608
  Serious: Yes (Hospitalization)
  Sender: FDA-Public Use
  Company Number: FR-GLAXOSMITHKLINE-B0782128A

PATIENT
  Age: 49 Year
  Sex: Female
  Weight: 114 kg

DRUGS (6)
  1. ACETAMINOPHEN AND TRAMADOL HCL [Concomitant]
     Route: 065
  2. ARIXTRA [Suspect]
     Indication: THROMBOSIS PROPHYLAXIS
     Dosage: 2.5MG PER DAY
     Route: 058
     Dates: start: 20120130, end: 20120131
  3. COZAAR [Concomitant]
     Route: 065
  4. INDAPAMIDE [Concomitant]
     Route: 065
  5. RILMENIDINE [Concomitant]
     Route: 065
  6. PROPRANOLOL [Concomitant]
     Route: 065

REACTIONS (2)
  - DRUG INEFFECTIVE [None]
  - PULMONARY EMBOLISM [None]
